FAERS Safety Report 4393489-8 (Version None)
Quarter: 2004Q3

REPORT INFORMATION
  Report Type: 
  Country: None (occurrence: None)
  Receive Date: 20040709
  Receipt Date: 20020617
  Transmission Date: 20050211
  Serious: Yes (Hospitalization)
  Sender: FDA-Public Use
  Company Number: PHBS2002JP07373

PATIENT
  Age: 22 Year
  Sex: Male

DRUGS (3)
  1. CARBAMAZEPINE [Suspect]
     Indication: CONVULSION
     Dosage: 200 MG/DAY
     Route: 048
     Dates: start: 19920101, end: 19920101
  2. CARBAMAZEPINE [Suspect]
     Dosage: 400 MG/DAY
     Route: 048
     Dates: start: 19810101, end: 19920101
  3. VALPROIC ACID [Concomitant]
     Dosage: 600 MG/DAY
     Route: 048
     Dates: start: 19810101

REACTIONS (4)
  - DELUSION OF GRANDEUR [None]
  - PERSECUTORY DELUSION [None]
  - PSYCHOMOTOR HYPERACTIVITY [None]
  - SOMATIC DELUSION [None]
